FAERS Safety Report 4312461-7 (Version None)
Quarter: 2004Q1

REPORT INFORMATION
  Report Type: 
  Country: None (occurrence: None)
  Receive Date: 20040305
  Receipt Date: 20040226
  Transmission Date: 20041129
  Serious: Yes (Disabling, Other)
  Sender: FDA-Public Use
  Company Number: PHBS2004FR02664

PATIENT
  Age: 64 Year
  Sex: Female

DRUGS (1)
  1. CARTEOLOL HCL [Suspect]
     Indication: OPEN ANGLE GLAUCOMA
     Dosage: 1 GTT, QD
     Dates: start: 20030401, end: 20030530

REACTIONS (13)
  - AGEUSIA [None]
  - ANOSMIA [None]
  - EYE IRRITATION [None]
  - EYE REDNESS [None]
  - FALL [None]
  - HAEMATOMA [None]
  - HEAD INJURY [None]
  - HEADACHE [None]
  - HEART RATE DECREASED [None]
  - HYPOTENSION [None]
  - INTRAOCULAR PRESSURE INCREASED [None]
  - VISUAL FIELD DEFECT [None]
  - VISUAL FIELD TESTS ABNORMAL [None]
